FAERS Safety Report 20191883 (Version 1)
Quarter: 2021Q4

REPORT INFORMATION
  Report Type: Spontaneous
  Country: US (occurrence: US)
  Receive Date: 20211216
  Receipt Date: 20211216
  Transmission Date: 20220304
  Serious: No
  Sender: FDA-Public Use
  Company Number: US-ENDO PHARMACEUTICALS INC-2020-007196

PATIENT
  Sex: Male
  Weight: 87.075 kg

DRUGS (7)
  1. XIAFLEX [Suspect]
     Active Substance: COLLAGENASE CLOSTRIDIUM HISTOLYTICUM
     Indication: Peyronie^s disease
     Dosage: 0.9MG, UNKNOWN  (CYCLE 3, INJECTION 1)
     Route: 065
     Dates: start: 20201120
  2. XIAFLEX [Suspect]
     Active Substance: COLLAGENASE CLOSTRIDIUM HISTOLYTICUM
     Dosage: 0.9MG, UNKNOWN  (CYCLE 2, INJECTION 2)
     Route: 065
     Dates: start: 20201030
  3. XIAFLEX [Suspect]
     Active Substance: COLLAGENASE CLOSTRIDIUM HISTOLYTICUM
     Dosage: 0.9MG, UNKNOWN  (CYCLE 2, INJECTION 1)
     Route: 065
     Dates: start: 20201026
  4. XIAFLEX [Suspect]
     Active Substance: COLLAGENASE CLOSTRIDIUM HISTOLYTICUM
     Dosage: 0.9MG, UNKNOWN (CYCLE 1, INJECTION 2)
     Route: 065
     Dates: start: 20200914
  5. XIAFLEX [Suspect]
     Active Substance: COLLAGENASE CLOSTRIDIUM HISTOLYTICUM
     Dosage: 0.9MG, UNKNOWN (CYCLE 1, INJECTION 1)
     Route: 065
     Dates: start: 20200909
  6. COLCHICINE [Concomitant]
     Active Substance: COLCHICINE
     Indication: Product used for unknown indication
     Dosage: 0.6 MG, UNKNOWN
     Route: 065
  7. GLIPIZIDE [Concomitant]
     Active Substance: GLIPIZIDE
     Indication: Product used for unknown indication
     Dosage: 10 MG, UNKNOWN
     Route: 065

REACTIONS (2)
  - Penile blister [Unknown]
  - Inappropriate schedule of product administration [Unknown]
